FAERS Safety Report 5043113-6 (Version None)
Quarter: 2006Q2

REPORT INFORMATION
  Report Type: 
  Country: None (occurrence: None)
  Receive Date: 20060628
  Receipt Date: 20060612
  Transmission Date: 20061013
  Serious: Yes (Other)
  Sender: FDA-Public Use
  Company Number: DE-2006-013917

PATIENT
  Age: 54 Year
  Sex: Male

DRUGS (2)
  1. CAMPATH [Suspect]
     Indication: CHRONIC LYMPHOCYTIC LEUKAEMIA
     Dosage: 3/10/30MG; SEE IMAGE
  2. CYCLOPHOSPHAMIDE [Concomitant]

REACTIONS (3)
  - CHOLESTASIS [None]
  - GRAFT VERSUS HOST DISEASE [None]
  - THROMBOCYTOPENIA [None]
